FAERS Safety Report 7809642-4 (Version None)
Quarter: 2011Q4

REPORT INFORMATION
  Report Type: 
  Country: None (occurrence: None)
  Receive Date: 20111012
  Receipt Date: 20111005
  Transmission Date: 20120403
  Serious: Yes (Hospitalization)
  Sender: FDA-Public Use
  Company Number: US-BRISTOL-MYERS SQUIBB COMPANY-16135204

PATIENT
  Sex: Male

DRUGS (2)
  1. WARFARIN SODIUM [Suspect]
     Indication: AORTIC VALVE REPLACEMENT
     Dosage: INCREASED TO 65 MG
  2. COUMADIN [Suspect]
     Dosage: INCREASED DOSE AT 65 MG ONCE DAILY

REACTIONS (2)
  - INTERNATIONAL NORMALISED RATIO DECREASED [None]
  - ATRIAL FIBRILLATION [None]
